FAERS Safety Report 22779388 (Version 2)
Quarter: 2023Q4

REPORT INFORMATION
  Report Type: Spontaneous
  Country: US (occurrence: US)
  Receive Date: 20230802
  Receipt Date: 20231019
  Transmission Date: 20240110
  Serious: Yes (Other)
  Sender: FDA-Public Use
  Company Number: US-BIOMARINAP-US-2023-151741

PATIENT

DRUGS (2)
  1. JAVYGTOR [Suspect]
     Active Substance: SAPROPTERIN DIHYDROCHLORIDE
     Indication: Phenylketonuria
     Dosage: 1700 MILLIGRAM, QD
     Route: 048
  2. BUSPIRONE [Concomitant]
     Active Substance: BUSPIRONE HYDROCHLORIDE
     Indication: Product used for unknown indication

REACTIONS (2)
  - Abortion spontaneous [Recovered/Resolved with Sequelae]
  - Maternal exposure during pregnancy [Recovered/Resolved]
